FAERS Safety Report 4634768-6 (Version None)
Quarter: 2005Q2

REPORT INFORMATION
  Report Type: 
  Country: None (occurrence: None)
  Receive Date: 20050412
  Receipt Date: 20050412
  Transmission Date: 20051028
  Serious: Yes (Other)
  Sender: FDA-Public Use
  Company Number: None

PATIENT
  Age: 52 Year
  Sex: Female
  Weight: 50.8029 kg

DRUGS (2)
  1. ESTRADIOL [Suspect]
     Indication: MENOPAUSAL SYMPTOMS
     Dosage: ORAL ONE DAILY
     Route: 048
     Dates: start: 20050318
  2. PROMETRIUM [Concomitant]

REACTIONS (5)
  - DRUG EFFECT DECREASED [None]
  - HOT FLUSH [None]
  - NIGHT SWEATS [None]
  - PHARMACEUTICAL PRODUCT COMPLAINT [None]
  - VULVOVAGINAL DRYNESS [None]
